FAERS Safety Report 12446180 (Version 1)
Quarter: 2016Q2

REPORT INFORMATION
  Report Type: Spontaneous
  Country: US (occurrence: None)
  Receive Date: 20160607
  Receipt Date: 20160607
  Transmission Date: 20160815
  Serious: Yes (Death)
  Sender: FDA-Public Use
  Company Number: None

PATIENT
  Age: 81 Year
  Sex: Female

DRUGS (8)
  1. ADCIRCA [Suspect]
     Active Substance: TADALAFIL
     Indication: PULMONARY ARTERIAL HYPERTENSION
     Route: 048
     Dates: start: 201210, end: 201605
  2. OPSUMIT [Concomitant]
     Active Substance: MACITENTAN
  3. SUCRALFATE. [Concomitant]
     Active Substance: SUCRALFATE
  4. FUROSEMIDE. [Concomitant]
     Active Substance: FUROSEMIDE
  5. OMEPRAZOLE. [Concomitant]
     Active Substance: OMEPRAZOLE
  6. KCL [Concomitant]
     Active Substance: POTASSIUM CHLORIDE
  7. LEVOTHYROXIN [Concomitant]
     Active Substance: LEVOTHYROXINE
  8. DILTIAZ [Concomitant]

REACTIONS (1)
  - Death [None]

NARRATIVE: CASE EVENT DATE: 20160529
